FAERS Safety Report 9050561 (Version 1)
Quarter: 2013Q1

REPORT INFORMATION
  Report Type: Spontaneous
  Country: JP (occurrence: JP)
  Receive Date: 20130205
  Receipt Date: 20130205
  Transmission Date: 20140127
  Serious: Yes (Other)
  Sender: FDA-Public Use
  Company Number: JP-OTSUKA-JP-2012-17246

PATIENT
  Age: 92 Year
  Sex: Male

DRUGS (12)
  1. SAMSCA [Suspect]
     Indication: CARDIAC FAILURE CONGESTIVE
     Dosage: 7.5 MG MILLIGRAM(S), QD
     Route: 048
     Dates: start: 20121211, end: 20121211
  2. LASIX [Concomitant]
     Indication: CARDIAC FAILURE CONGESTIVE
     Dosage: 10 MG MILLIGRAM(S), QD
     Route: 042
     Dates: start: 20121211, end: 20121212
  3. LASIX [Concomitant]
     Indication: HYPERNATRAEMIA
     Dosage: 20 MG MILLIGRAM(S), QD
     Route: 042
     Dates: start: 20121212, end: 20121212
  4. LASIX [Concomitant]
     Indication: HYPERNATRAEMIA
     Dosage: 40 MG MILLIGRAM(S), QD
     Route: 048
     Dates: start: 20121213, end: 20121221
  5. SPIRONOLACTONE [Concomitant]
     Indication: HYPERNATRAEMIA
     Dosage: 25 MG MILLIGRAM(S), QD
     Route: 048
     Dates: start: 20121213, end: 20121221
  6. TAKEPRON [Concomitant]
     Dosage: 15 MG MILLIGRAM(S), DAILY DOSE
     Route: 048
     Dates: end: 20121211
  7. LIPITOR [Concomitant]
     Dosage: 5 MG MILLIGRAM(S), DAILY DOSE
     Route: 048
     Dates: end: 20121211
  8. PRELAZINE [Concomitant]
     Dosage: 200 MG MILLIGRAM(S), DAILY DOSE
     Route: 048
     Dates: end: 20121211
  9. CORONAMOLE [Concomitant]
     Dosage: 100 MG MILLIGRAM(S), DAILY DOSE
     Route: 048
     Dates: end: 20121211
  10. COROHERSER R [Concomitant]
     Dosage: 200 MG MILLIGRAM(S), DAILY DOSE
     Route: 048
     Dates: end: 20121211
  11. TROXSIN [Concomitant]
     Dosage: 200 MG MILLIGRAM(S), DAILY DOSE
     Route: 048
     Dates: end: 20121211
  12. SENNAL [Concomitant]
     Dosage: 24 MG MILLIGRAM(S), DAILY DOSE
     Route: 048
     Dates: end: 20121211

REACTIONS (2)
  - Hypernatraemia [Recovering/Resolving]
  - Thirst [Recovering/Resolving]
